FAERS Safety Report 7930073-0 (Version None)
Quarter: 2011Q4

REPORT INFORMATION
  Report Type: 
  Country: None (occurrence: None)
  Receive Date: 20111121
  Receipt Date: 20111110
  Transmission Date: 20120403
  Serious: Yes (Other)
  Sender: FDA-Public Use
  Company Number: US-US-EMD SERONO, INC.-7094659

PATIENT
  Sex: Male

DRUGS (7)
  1. MULTIVITAMIN WITH MINERALS [Concomitant]
     Route: 048
  2. ZOLOFT [Concomitant]
     Route: 048
  3. REBIF [Suspect]
     Indication: MULTIPLE SCLEROSIS
     Route: 058
     Dates: start: 20100310
  4. CRESTOR [Concomitant]
  5. FLU SHOT [Concomitant]
     Dates: start: 20111001, end: 20111001
  6. IBUPROFEN [Concomitant]
     Indication: PAIN
  7. AUGMENTIN [Concomitant]
     Dosage: 875-125 MG
     Route: 048

REACTIONS (8)
  - PAIN IN EXTREMITY [None]
  - HEADACHE [None]
  - BLOOD PRESSURE ABNORMAL [None]
  - GAIT DISTURBANCE [None]
  - ANGER [None]
  - IMPETIGO [None]
  - CELLULITIS [None]
  - PAIN IN JAW [None]
